FAERS Safety Report 9033202 (Version 2)
Quarter: 2014Q3

REPORT INFORMATION
  Report Type: Report from Study
  Country: BD (occurrence: BD)
  Receive Date: 20130128
  Receipt Date: 20140703
  Transmission Date: 20150326
  Serious: Yes (Death)
  Sender: FDA-Public Use
  Company Number: PHHY2013BD007684

PATIENT
  Age: 72 Year
  Sex: Female

DRUGS (2)
  1. ACLASTA [Suspect]
     Active Substance: ZOLEDRONIC ACID
     Indication: OSTEOPOROSIS
     Dosage: 5MG/100ML
     Route: 042
     Dates: start: 20111215
  2. ACLASTA [Suspect]
     Active Substance: ZOLEDRONIC ACID
     Indication: KNEE DEFORMITY

REACTIONS (2)
  - Pneumonia [Fatal]
  - Nasopharyngitis [Fatal]
